FAERS Safety Report 8830340 (Version 2)
Quarter: 2013Q1

REPORT INFORMATION
  Report Type: Spontaneous
  Country: DE (occurrence: DE)
  Receive Date: 20121009
  Receipt Date: 20130315
  Transmission Date: 20140127
  Serious: Yes (Death, Hospitalization)
  Sender: FDA-Public Use
  Company Number: DE-SANOFI-AVENTIS-2012SA072864

PATIENT
  Sex: Female
  Weight: 84 kg

DRUGS (6)
  1. DOCETAXEL [Suspect]
     Indication: BREAST CANCER METASTATIC
     Route: 042
     Dates: start: 20100827, end: 20101008
  2. DOCETAXEL [Suspect]
     Indication: BREAST CANCER METASTATIC
     Dosage: DOSE REDUCED, 75% FROM ORIGINAL DOSE
     Route: 042
     Dates: start: 20101116, end: 20110105
  3. BEVACIZUMAB [Suspect]
     Indication: BREAST CANCER METASTATIC
     Route: 042
     Dates: start: 20100827, end: 20110105
  4. BEVACIZUMAB [Suspect]
     Indication: BREAST CANCER METASTATIC
     Dosage: DOSE REDUCED TO 75% OF ORIGINAL DOSE
  5. ZOMETA [Suspect]
     Indication: BREAST CANCER METASTATIC
     Route: 042
     Dates: start: 2008, end: 201008
  6. ZOMETA [Suspect]
     Indication: BREAST CANCER METASTATIC
     Dosage: DOSE REDUCED, 75 % OF ORIGINAL DOSE
     Route: 042
     Dates: start: 20100827, end: 20110105

REACTIONS (6)
  - Cholecystitis infective [Fatal]
  - Septic shock [Fatal]
  - General physical health deterioration [Unknown]
  - Cholelithiasis [Recovered/Resolved]
  - Gallbladder perforation [Unknown]
  - Cholecystitis [Unknown]
